FAERS Safety Report 8613586-8 (Version None)
Quarter: 2012Q3

REPORT INFORMATION
  Report Type: 
  Country: None (occurrence: None)
  Receive Date: 20120823
  Receipt Date: 20120808
  Transmission Date: 20120928
  Serious: Yes (Hospitalization, Other)
  Sender: FDA-Public Use
  Company Number: JP-009507513-2012SP035013

PATIENT

DRUGS (14)
  1. REBETOL [Suspect]
     Indication: HEPATITIS C
     Dosage: 800 MG, QD
     Route: 048
     Dates: start: 20120418, end: 20120507
  2. TELAVIC [Suspect]
     Indication: HEPATITIS C
     Dosage: 2250 MG, QD,CUMULATIVE DOSE 4500 MG
     Route: 048
     Dates: start: 20120418, end: 20120425
  3. MOTILIUM [Concomitant]
     Indication: NAUSEA
     Dosage: 3 DOASAGE FORMS, OTHER INDICATION: VOMITING
     Route: 048
     Dates: start: 20120420
  4. EURAX [Concomitant]
     Indication: ECZEMA
     Dosage: UNK
     Dates: start: 20120627
  5. REBETOL [Suspect]
     Dosage: 600 MG, QD
     Route: 048
     Dates: start: 20120508, end: 20120508
  6. TELAVIC [Suspect]
     Dosage: 1000 UNK, UNK,CUMULATIVE DOSE 4500 MG
     Dates: start: 20120613, end: 20120709
  7. ALLEGRA [Concomitant]
     Indication: ECZEMA
     Dosage: 240 MG, QD
     Route: 048
     Dates: start: 20120627
  8. CLOBETASOL PROPIONATE [Concomitant]
     Indication: ECZEMA
     Dosage: UNK
     Dates: start: 20120627
  9. PREDONINE [Concomitant]
     Dosage: 10 MG, QD
     Dates: start: 20120702, end: 20120704
  10. TELAVIC [Suspect]
     Dosage: 1500 MG, QD,CUMULATIVE DOSE 4500 MG
     Route: 048
     Dates: start: 20120426, end: 20120612
  11. PEGINTERFERON ALFA-2B [Suspect]
     Indication: HEPATITIS C
     Dosage: 1.5 MICROGRAM PER KILOGRAM, QW
     Route: 058
     Dates: start: 20120418
  12. REBETOL [Suspect]
     Dosage: 400 MG, QD
     Route: 048
     Dates: start: 20120509, end: 20120514
  13. REBETOL [Suspect]
     Dosage: 200 MG, QD
     Route: 048
     Dates: start: 20120515
  14. PREDONINE [Concomitant]
     Dosage: 20 MG, QD
     Route: 048
     Dates: start: 20120629, end: 20120701

REACTIONS (6)
  - MALAISE [None]
  - NAUSEA [None]
  - ANAEMIA [None]
  - VOMITING [None]
  - WHITE BLOOD CELL COUNT DECREASED [None]
  - DECREASED APPETITE [None]
